FAERS Safety Report 16057595 (Version 1)
Quarter: 2019Q1

REPORT INFORMATION
  Report Type: Spontaneous
  Country: US (occurrence: US)
  Receive Date: 20190311
  Receipt Date: 20190311
  Transmission Date: 20190418
  Serious: Yes (Hospitalization, Other)
  Sender: FDA-Public Use
  Company Number: US-SA-2019SA063702

PATIENT
  Sex: Female

DRUGS (16)
  1. VENTOLIN HFA [Concomitant]
     Active Substance: ALBUTEROL SULFATE
  2. RISPERIDONE. [Concomitant]
     Active Substance: RISPERIDONE
  3. ONDANSETRON [Concomitant]
     Active Substance: ONDANSETRON
  4. TIZANIDINE [TIZANIDINE HYDROCHLORIDE] [Concomitant]
  5. LEVOTHYROXINE SODIUM. [Concomitant]
     Active Substance: LEVOTHYROXINE SODIUM
  6. FIBER [Concomitant]
     Active Substance: PSYLLIUM HUSK
  7. HYDROXYZINE [Concomitant]
     Active Substance: HYDROXYZINE HYDROCHLORIDE
  8. HYDROXYZINE HCL [Concomitant]
     Active Substance: HYDROXYZINE HYDROCHLORIDE
  9. PROBIOTIC [BIFIDOBACTERIUM LACTIS] [Concomitant]
  10. BUPROPION HCL [Concomitant]
     Active Substance: BUPROPION HYDROCHLORIDE
  11. BACLOFEN. [Concomitant]
     Active Substance: BACLOFEN
  12. MULTI VITAMIN [ASCORBIC ACID;COLECALCIFEROL;NICOTINAMIDE;PANTHENOL;PYR [Concomitant]
  13. AUBAGIO [Suspect]
     Active Substance: TERIFLUNOMIDE
     Dosage: 1 DF, QD
     Route: 048
  14. VITAMIN D [Concomitant]
     Active Substance: CHOLECALCIFEROL
  15. IBUPROFEN. [Concomitant]
     Active Substance: IBUPROFEN
  16. TRIPLE ANTIBIOTIC [BACITRACIN ZINC;GRAMICIDIN;POLYMYXIN B SULFATE] [Concomitant]

REACTIONS (2)
  - Hospitalisation [Unknown]
  - Product dose omission [Unknown]
